FAERS Safety Report 10171465 (Version 1)
Quarter: 2014Q2

REPORT INFORMATION
  Report Type: Spontaneous
  Country: US (occurrence: None)
  Receive Date: 20140429
  Receipt Date: 20140429
  Transmission Date: 20141212
  Serious: Yes (Other)
  Sender: FDA-Public Use
  Company Number: 2013-US-001610

PATIENT
  Age: 24 Year
  Sex: Male

DRUGS (1)
  1. LUVOX CR [Suspect]
     Indication: OBSESSIVE-COMPULSIVE DISORDER
     Route: 048

REACTIONS (6)
  - Panic attack [None]
  - Respiratory rate increased [None]
  - Dyspnoea [None]
  - Crying [None]
  - Chest discomfort [None]
  - Anxiety [None]
